FAERS Safety Report 9060133 (Version 1)
Quarter: 2013Q1

REPORT INFORMATION
  Report Type: Spontaneous
  Country: FR (occurrence: FR)
  Receive Date: 20130212
  Receipt Date: 20130212
  Transmission Date: 20140127
  Serious: Yes (Hospitalization)
  Sender: FDA-Public Use
  Company Number: PHHY2013FR013581

PATIENT
  Sex: Male

DRUGS (15)
  1. AMOXICILLIN + CLAVULANATE POTASSIUM [Suspect]
     Indication: ACUTE SINUSITIS
     Dosage: 3 G, DAILY
     Route: 048
     Dates: start: 20090731, end: 20090803
  2. PREDNISOLONE [Suspect]
     Indication: ACUTE SINUSITIS
     Dosage: 1 DF, QD
     Route: 048
     Dates: start: 20090731, end: 20090803
  3. EFFERALGAN [Suspect]
     Dosage: 1 DF, IN 1 DAY
     Route: 048
     Dates: start: 20090731, end: 20090803
  4. EFFERALGAN CODEINE [Suspect]
     Dosage: 500 MG, UNK
  5. COUMADINE [Suspect]
     Dosage: 1.5 DF, PER DAY
     Route: 048
     Dates: start: 20090403
  6. COUMADINE [Suspect]
     Dosage: 1.5 DF, PER DAY
     Dates: start: 20090807
  7. ASPEGIC [Concomitant]
     Dosage: 1000 U, UNK
  8. TRIATEC [Concomitant]
     Dosage: 1.25 U, UNK
  9. ISOPTINE [Concomitant]
     Dosage: 400 U, UNK
  10. CRESTOR [Concomitant]
     Dosage: 10 U, UNK
  11. INEXIUM//ESOMEPRAZOLE SODIUM [Concomitant]
     Dosage: 20 U, UNK
  12. TADENAN [Concomitant]
  13. SERETIDE [Concomitant]
  14. BRONCHODUAL [Concomitant]
  15. SPIRIVA [Concomitant]

REACTIONS (5)
  - Renal failure acute [Unknown]
  - Melaena [Recovering/Resolving]
  - Diverticulitis [Unknown]
  - Anaemia [Recovering/Resolving]
  - International normalised ratio increased [Recovered/Resolved]
